FAERS Safety Report 7102023-0 (Version None)
Quarter: 2010Q4

REPORT INFORMATION
  Report Type: 
  Country: None (occurrence: None)
  Receive Date: 20101115
  Receipt Date: 20101108
  Transmission Date: 20110411
  Serious: Yes (Disabling)
  Sender: FDA-Public Use
  Company Number: FR-ROCHE-728876

PATIENT
  Sex: Female

DRUGS (2)
  1. ISOTRETINOIN [Suspect]
     Route: 048
     Dates: start: 20090901, end: 20100501
  2. YASMIN [Suspect]
     Dosage: FORM: PILLS
     Route: 048
     Dates: start: 20090901, end: 20100801

REACTIONS (2)
  - PAPILLOEDEMA [None]
  - RETINAL VEIN THROMBOSIS [None]
